FAERS Safety Report 11394395 (Version 2)
Quarter: 2015Q3

REPORT INFORMATION
  Report Type: Report from Study
  Country: US (occurrence: US)
  Receive Date: 20150819
  Receipt Date: 20150909
  Transmission Date: 20151125
  Serious: No
  Sender: FDA-Public Use
  Company Number: US-ASTRAZENECA-2015SE77410

PATIENT
  Age: 86 Year
  Sex: Female

DRUGS (10)
  1. NEXIUM [Suspect]
     Active Substance: ESOMEPRAZOLE MAGNESIUM
     Indication: ABDOMINAL DISCOMFORT
     Route: 048
     Dates: start: 201503
  2. EYE MEDICATION [Concomitant]
     Indication: EYE DISORDER
     Dosage: EVERY SIX WEEKS
  3. BRILINTA [Suspect]
     Active Substance: TICAGRELOR
     Indication: MYOCARDIAL INFARCTION
     Route: 048
     Dates: start: 201503, end: 20150827
  4. NEXIUM [Suspect]
     Active Substance: ESOMEPRAZOLE MAGNESIUM
     Indication: GASTROOESOPHAGEAL REFLUX DISEASE
     Route: 048
     Dates: start: 201503
  5. ASPIRIN. [Concomitant]
     Active Substance: ASPIRIN
     Indication: ADJUVANT THERAPY
     Route: 048
     Dates: start: 201503
  6. BRILINTA [Suspect]
     Active Substance: TICAGRELOR
     Indication: STENT PLACEMENT
     Route: 048
     Dates: start: 201503, end: 20150827
  7. STOOL SOFTNER [Concomitant]
     Indication: ABNORMAL FAECES
     Dosage: DAILY
  8. METOPROLOL SUCCINATE. [Suspect]
     Active Substance: METOPROLOL SUCCINATE
     Indication: CARDIAC DISORDER
     Route: 048
     Dates: start: 201503
  9. VITAMIN D [Concomitant]
     Active Substance: CHOLECALCIFEROL
     Dosage: DAILY
  10. ACETAMINOPHEN. [Concomitant]
     Active Substance: ACETAMINOPHEN
     Indication: SLEEP DISORDER
     Dosage: HALF AT NIGHT, APPROXIMATELY THREE TIMES PER WEEK

REACTIONS (9)
  - Hypophagia [Unknown]
  - Feeling abnormal [Recovered/Resolved]
  - Sinusitis [Recovered/Resolved]
  - Body height decreased [Unknown]
  - Pain in extremity [Unknown]
  - Decreased appetite [Unknown]
  - Contusion [Unknown]
  - Abdominal discomfort [Unknown]
  - Dyspnoea [Unknown]

NARRATIVE: CASE EVENT DATE: 2015
